FAERS Safety Report 5481737-2 (Version None)
Quarter: 2007Q4

REPORT INFORMATION
  Report Type: 
  Country: None (occurrence: None)
  Receive Date: 20071010
  Receipt Date: 20071005
  Transmission Date: 20080405
  Serious: Yes (Hospitalization)
  Sender: FDA-Public Use
  Company Number: US-SHR-US-2006-025429

PATIENT
  Age: 70 Year
  Sex: Female
  Weight: 63.492 kg

DRUGS (10)
  1. BETASERON [Suspect]
     Indication: RELAPSING-REMITTING MULTIPLE SCLEROSIS
     Dosage: 8 MIU, EVERY 2D
     Route: 058
     Dates: start: 20060723
  2. BETASERON [Suspect]
     Dosage: 8 MIU, EVERY 2D
     Route: 058
     Dates: start: 19931130, end: 20060711
  3. CARBAMAZEPINE [Concomitant]
     Dosage: 200 MG, AS REQ'D (1-3/DAY)
  4. RANITIDINE HCL [Concomitant]
     Dosage: 150 MG, 1X/DAY
  5. OXYBUTYNIN CHLORIDE [Interacting]
     Dosage: 5 MG, 3X/DAY
  6. NEURONTIN [Concomitant]
     Dosage: 200 MG, AS REQ'D (1-3/DAY)
  7. DIAZEPAM [Concomitant]
     Dosage: 5 MG, AS REQ'D (1-2/DAY)
  8. NITROFURANTOIN [Concomitant]
     Dosage: 500 MG, 1X/DAY
  9. FOSAMAX [Concomitant]
     Dosage: UNK, 1X/WEEK
  10. MICARDIS [Concomitant]
     Indication: BLOOD PRESSURE
     Dosage: 80 MG, 1X/DAY

REACTIONS (3)
  - CHEST PAIN [None]
  - HYPERTENSION [None]
  - LOSS OF CONSCIOUSNESS [None]
